FAERS Safety Report 6279830-X (Version None)
Quarter: 2009Q3

REPORT INFORMATION
  Report Type: 
  Country: None (occurrence: None)
  Receive Date: 20090723
  Receipt Date: 20090713
  Transmission Date: 20100115
  Serious: Yes (Other)
  Sender: FDA-Public Use
  Company Number: PHHY2009DE28688

PATIENT
  Age: 54 Year

DRUGS (2)
  1. AREDIA [Suspect]
     Route: 042
  2. ZOMETA [Suspect]
     Route: 042

REACTIONS (1)
  - OSTEONECROSIS [None]
